FAERS Safety Report 8235810-6 (Version None)
Quarter: 2012Q1

REPORT INFORMATION
  Report Type: 
  Country: None (occurrence: None)
  Receive Date: 20120326
  Receipt Date: 20120319
  Transmission Date: 20120608
  Serious: Yes (Other)
  Sender: FDA-Public Use
  Company Number: US-PFIZER INC-2010018297

PATIENT
  Sex: Female
  Weight: 87.1 kg

DRUGS (3)
  1. TOVIAZ [Suspect]
     Indication: HYPERTONIC BLADDER
     Dosage: 6 MG, UNK
  2. ALBUTEROL [Suspect]
     Dosage: UNK
  3. TOVIAZ [Suspect]
     Indication: URINARY INCONTINENCE
     Dosage: 4 MG, 1X/DAY
     Route: 048
     Dates: start: 20090101

REACTIONS (13)
  - THYROID DISORDER [None]
  - ARTHROPATHY [None]
  - CONSTIPATION [None]
  - HEADACHE [None]
  - DRY SKIN [None]
  - STRESS [None]
  - WRONG TECHNIQUE IN DRUG USAGE PROCESS [None]
  - LOCALISED INFECTION [None]
  - DRY MOUTH [None]
  - DRUG INEFFECTIVE [None]
  - OROPHARYNGEAL PAIN [None]
  - MEMORY IMPAIRMENT [None]
  - MALAISE [None]
